FAERS Safety Report 8348814-X (Version None)
Quarter: 2012Q2

REPORT INFORMATION
  Report Type: 
  Country: None (occurrence: None)
  Receive Date: 20120508
  Receipt Date: 20120418
  Transmission Date: 20120825
  Serious: Yes (Other)
  Sender: FDA-Public Use
  Company Number: 001204808A

PATIENT
  Age: 21 Year
  Sex: Female

DRUGS (1)
  1. PROACTIV 90 DAY KIT [Suspect]
     Indication: ACNE
     Dosage: TWICE DAILY DERMAL
     Dates: start: 20120412

REACTIONS (2)
  - EYE SWELLING [None]
  - SWELLING FACE [None]
